FAERS Safety Report 11081984 (Version 1)
Quarter: 2015Q2

REPORT INFORMATION
  Report Type: Spontaneous
  Country: DE (occurrence: DE)
  Receive Date: 20150501
  Receipt Date: 20150501
  Transmission Date: 20150821
  Serious: Yes (Other)
  Sender: FDA-Public Use
  Company Number: DE-TEVA-558147GER

PATIENT
  Age: 55 Year
  Sex: Female
  Weight: 77 kg

DRUGS (6)
  1. ATARAX [Concomitant]
     Active Substance: HYDROXYZINE\HYDROXYZINE HYDROCHLORIDE
     Dates: start: 20150108
  2. COTRIM-CT 800 MG/160 MG TABLETTEN [Suspect]
     Active Substance: SULFAMETHOXAZOLE\TRIMETHOPRIM
     Indication: PYREXIA
  3. SIMVASTATIN 30 MG [Concomitant]
     Dates: start: 20150108
  4. SPIRONOLACTON 50 MG [Concomitant]
     Dates: start: 20150108
  5. COTRIM-CT 800 MG/160 MG TABLETTEN [Suspect]
     Active Substance: SULFAMETHOXAZOLE\TRIMETHOPRIM
     Indication: BRONCHITIS
     Dosage: 1 DF= 800 MG SULFAMETHOXAZOLE AND 160 MG TRIMETHOPRIM
     Route: 048
     Dates: start: 20150302, end: 20150306
  6. PANTOPRAZOLE SODIUM. [Concomitant]
     Active Substance: PANTOPRAZOLE SODIUM
     Dates: start: 20150108

REACTIONS (4)
  - Vaginal exfoliation [Recovered/Resolved]
  - Tinea pedis [Recovered/Resolved]
  - Blister [Recovered/Resolved]
  - Vulval haemorrhage [Recovered/Resolved]

NARRATIVE: CASE EVENT DATE: 20150303
